FAERS Safety Report 6263682-8 (Version None)
Quarter: 2009Q3

REPORT INFORMATION
  Report Type: 
  Country: None (occurrence: None)
  Receive Date: 20090710
  Receipt Date: 20090708
  Transmission Date: 20100115
  Serious: Yes (Other)
  Sender: FDA-Public Use
  Company Number: US-ALLERGAN-0909607US

PATIENT
  Age: 59 Year
  Sex: Female

DRUGS (1)
  1. COMBIGAN [Suspect]
     Indication: GLAUCOMA
     Dosage: UNK, UNKNOWN
     Route: 047

REACTIONS (2)
  - CONFUSIONAL STATE [None]
  - MUSCULAR WEAKNESS [None]
